FAERS Safety Report 9034320 (Version 2)
Quarter: 2013Q2

REPORT INFORMATION
  Report Type: Spontaneous
  Country: US (occurrence: None)
  Receive Date: 20130114
  Receipt Date: 20130617
  Transmission Date: 20140414
  Serious: Yes (Disabling, Other)
  Sender: FDA-Public Use
  Company Number: ACO_33676_2013

PATIENT
  Age: 66 Year
  Sex: Female

DRUGS (16)
  1. AMPYRA [Suspect]
     Indication: GAIT DISTURBANCE
     Dates: start: 201210, end: 201301
  2. AMPYRA [Suspect]
     Indication: MULTIPLE SCLEROSIS
     Dates: start: 201210, end: 201301
  3. AMLODIPINE BESYLATE (AMLODIPINE BESILATE) [Concomitant]
  4. HYDROCHLOROTHIAZIDE (HYDROCHLOROTHIAZIDE) [Concomitant]
  5. PERCOCET [Concomitant]
  6. MUCINEX (GUAIFENESIN) [Concomitant]
  7. COLACE [Concomitant]
  8. CALCIUM + VITAMIN D (CALCIUM, COLECALCIFEROL) [Concomitant]
  9. TOPAMAX (TOPIRAMATE) [Concomitant]
  10. FLONASE (FLUTICASONE PROPIONATE) [Concomitant]
  11. TRAZODONE (TRAZODONE) [Concomitant]
  12. OXYCONTIN (OXYCODONE HYDROCHLORIDE) [Concomitant]
  13. SENNA [Concomitant]
  14. OMEPRAZOLE (OMEPRAZOLE) [Concomitant]
  15. SPIRIVA (TIOTROPIUM BROMIDE) (TIOTROPIUM BROMIDE) [Concomitant]
  16. GABAPENTIN (GABAPENTIN) [Concomitant]

REACTIONS (4)
  - Gait disturbance [None]
  - Abasia [None]
  - Depression [None]
  - Drug ineffective [None]
